FAERS Safety Report 6222447-3 (Version None)
Quarter: 2009Q2

REPORT INFORMATION
  Report Type: 
  Country: None (occurrence: None)
  Receive Date: 20090608
  Receipt Date: 20090525
  Transmission Date: 20091009
  Serious: Yes (Hospitalization)
  Sender: FDA-Public Use
  Company Number: JP-GENENTECH-281442

PATIENT
  Sex: Male

DRUGS (9)
  1. AVASTIN [Suspect]
     Indication: COLON CANCER
     Dosage: 305 MG, Q2W
     Route: 041
     Dates: start: 20071108, end: 20090318
  2. FLUOROURACIL [Concomitant]
     Indication: COLON CANCER
     Dosage: 3890 MG, Q2W
     Dates: start: 20071108, end: 20090318
  3. CAMPTOSAR [Concomitant]
     Indication: COLON CANCER
     Dosage: 245 MG, Q2W
     Route: 041
     Dates: start: 20071108, end: 20090318
  4. CALCIUM LEVOFOLINATE [Concomitant]
     Indication: COLON CANCER
     Dosage: UNK
     Dates: start: 20071108, end: 20090318
  5. GASTER [Concomitant]
     Indication: DRUG USE FOR UNKNOWN INDICATION
  6. DEXAMETHASONE SODIUM PHOSPHATE [Concomitant]
     Indication: DRUG USE FOR UNKNOWN INDICATION
     Dosage: UNK
     Dates: start: 20081203, end: 20090318
  7. SEROTONE [Concomitant]
     Indication: DRUG USE FOR UNKNOWN INDICATION
     Dosage: UNK
     Dates: start: 20081203, end: 20090318
  8. KYTRIL [Concomitant]
     Indication: DRUG USE FOR UNKNOWN INDICATION
     Dosage: UNK
     Dates: start: 20081203, end: 20081230
  9. WYPAX [Concomitant]
     Indication: DRUG USE FOR UNKNOWN INDICATION
     Dosage: UNK
     Dates: start: 20081226, end: 20090114

REACTIONS (4)
  - ALOPECIA [None]
  - HAEMOTHORAX [None]
  - STOMATITIS [None]
  - WHITE BLOOD CELL COUNT DECREASED [None]
